FAERS Safety Report 11446883 (Version 1)
Quarter: 2015Q3

REPORT INFORMATION
  Report Type: Spontaneous
  Country: US (occurrence: US)
  Receive Date: 20150831
  Receipt Date: 20150831
  Transmission Date: 20151125
  Serious: No
  Sender: FDA-Public Use
  Company Number: US-ELI_LILLY_AND_COMPANY-US200812005949

PATIENT
  Sex: Male

DRUGS (4)
  1. FORTEO [Concomitant]
     Active Substance: TERIPARATIDE
     Dosage: 1 D/F, UNK
  2. ATIVAN [Concomitant]
     Active Substance: LORAZEPAM
     Dosage: 1 D/F, UNK
  3. CYMBALTA [Suspect]
     Active Substance: DULOXETINE HYDROCHLORIDE
     Dosage: 20 MG, UNK
     Dates: start: 2008
  4. CYMBALTA [Suspect]
     Active Substance: DULOXETINE HYDROCHLORIDE
     Indication: NEUROPATHY PERIPHERAL
     Dosage: 30 MG, UNK
     Dates: start: 200811

REACTIONS (4)
  - Somnolence [Not Recovered/Not Resolved]
  - Abdominal pain [Not Recovered/Not Resolved]
  - Insomnia [Not Recovered/Not Resolved]
  - Constipation [Not Recovered/Not Resolved]

NARRATIVE: CASE EVENT DATE: 2008
